FAERS Safety Report 4683089-4 (Version None)
Quarter: 2005Q2

REPORT INFORMATION
  Report Type: 
  Country: None (occurrence: None)
  Receive Date: 20050602
  Receipt Date: 20050325
  Transmission Date: 20051028
  Serious: No
  Sender: FDA-Public Use
  Company Number: USA050394123

PATIENT
  Age: 55 Year
  Sex: Male
  Weight: 114 kg

DRUGS (4)
  1. CYMBALTA [Suspect]
     Dosage: 60 MG DAY
     Dates: start: 20050201, end: 20050322
  2. INSULIN [Concomitant]
  3. ASPIRIN [Concomitant]
  4. TOPROL-XL [Concomitant]

REACTIONS (3)
  - CHEST PAIN [None]
  - DYSPNOEA [None]
  - HEART RATE IRREGULAR [None]
